FAERS Safety Report 7790441-7 (Version None)
Quarter: 2011Q3

REPORT INFORMATION
  Report Type: 
  Country: None (occurrence: None)
  Receive Date: 20110930
  Receipt Date: 20110929
  Transmission Date: 20111222
  Serious: Yes (Death, Hospitalization)
  Sender: FDA-Public Use
  Company Number: AU-B.I. PHARMACEUTICALS,INC./RIDGEFIELD-2011-AU-01643AU

PATIENT
  Age: 73 Year
  Sex: Male

DRUGS (2)
  1. PRADAXA [Suspect]
  2. PRADAXA [Suspect]
     Indication: AORTIC VALVE REPLACEMENT

REACTIONS (4)
  - CARDIAC VALVE REPLACEMENT COMPLICATION [None]
  - HEART VALVE INCOMPETENCE [None]
  - CHEST PAIN [None]
  - DEATH [None]
